FAERS Safety Report 17571121 (Version 1)
Quarter: 2020Q1

REPORT INFORMATION
  Report Type: Report from Study
  Country: CO (occurrence: CO)
  Receive Date: 20200323
  Receipt Date: 20200323
  Transmission Date: 20200409
  Serious: Yes (Other)
  Sender: FDA-Public Use
  Company Number: CO-ROCHE-1642254

PATIENT
  Sex: Female

DRUGS (1)
  1. MABTHERA [Suspect]
     Active Substance: RITUXIMAB
     Indication: RHEUMATOID ARTHRITIS
     Route: 041
     Dates: start: 20141007

REACTIONS (11)
  - Angina unstable [Unknown]
  - Mitral valve incompetence [Unknown]
  - Pain [Unknown]
  - Tendon rupture [Recovered/Resolved]
  - Rash [Recovered/Resolved]
  - Ligament rupture [Unknown]
  - Eye disorder [Unknown]
  - Influenza [Recovered/Resolved]
  - Immunodeficiency [Unknown]
  - Malaise [Unknown]
  - Drug ineffective [Unknown]
